FAERS Safety Report 19845159 (Version 4)
Quarter: 2025Q4

REPORT INFORMATION
  Report Type: Spontaneous
  Country: US (occurrence: US)
  Receive Date: 20210916
  Receipt Date: 20251229
  Transmission Date: 20260118
  Serious: No
  Sender: NOVARTIS
  Company Number: US-NOVARTISTESTPH-NVSC2021US210787

PATIENT

DRUGS (1)
  1. KESIMPTA [Suspect]
     Active Substance: OFATUMUMAB
     Indication: Relapsing multiple sclerosis
     Dosage: 20 MG, (20 MG/0.4 ML SOLUTION) QMO (INTRAMUSCULAR IN THE MUSCLES)
     Route: 030

REACTIONS (2)
  - COVID-19 [Unknown]
  - Incorrect route of product administration [Unknown]
